FAERS Safety Report 9386943 (Version 1)
Quarter: 2013Q3

REPORT INFORMATION
  Report Type: Spontaneous
  Country: US (occurrence: None)
  Receive Date: 20130703
  Receipt Date: 20130703
  Transmission Date: 20140515
  Serious: Yes (Life-Threatening, Hospitalization)
  Sender: FDA-Public Use
  Company Number: None

PATIENT
  Age: 84 Year
  Sex: Male
  Weight: 90 kg

DRUGS (2)
  1. WARFARIN [Suspect]
     Indication: ATRIAL FIBRILLATION
     Route: 048
     Dates: start: 20090611, end: 20130322
  2. ASPIRIN [Suspect]
     Indication: CARDIOVASCULAR EVENT PROPHYLAXIS
     Dates: start: 20070509, end: 20130322

REACTIONS (7)
  - Melaena [None]
  - Dyspnoea [None]
  - International normalised ratio increased [None]
  - Coagulopathy [None]
  - Haemoglobin decreased [None]
  - Haemorrhagic arteriovenous malformation [None]
  - Haemorrhage [None]
